FAERS Safety Report 7731660-5 (Version None)
Quarter: 2011Q3

REPORT INFORMATION
  Report Type: 
  Country: None (occurrence: None)
  Receive Date: 20110906
  Receipt Date: 20110624
  Transmission Date: 20111222
  Serious: No
  Sender: FDA-Public Use
  Company Number: US-AMGEN-USASP2011032402

PATIENT
  Age: 85 Year
  Sex: Female

DRUGS (8)
  1. ALLERGY MEDICATION [Concomitant]
  2. CALCIUM CARBONATE [Concomitant]
  3. CARDIAC THERAPY [Concomitant]
  4. ANTIHYPERTENSIVES [Concomitant]
  5. PROLIA [Suspect]
     Indication: OSTEOARTHRITIS
     Dosage: UNK
     Dates: start: 20110201
  6. TYLENOL (CAPLET) [Concomitant]
     Dosage: 8 UNK, QD
  7. DAILY VITAMINS [Concomitant]
  8. GLUCOSAMINE [Concomitant]

REACTIONS (5)
  - PAIN [None]
  - NECK PAIN [None]
  - ARTHRALGIA [None]
  - MUSCULOSKELETAL PAIN [None]
  - PAIN IN EXTREMITY [None]
